FAERS Safety Report 10611968 (Version 2)
Quarter: 2014Q4

REPORT INFORMATION
  Report Type: Spontaneous
  Country: US (occurrence: US)
  Receive Date: 20141126
  Receipt Date: 20141216
  Transmission Date: 20150529
  Serious: Yes (Death, Hospitalization, Other)
  Sender: FDA-Public Use
  Company Number: US-009507513-1411USA012617

PATIENT
  Age: 55 Year
  Sex: Female
  Weight: 45.35 kg

DRUGS (1)
  1. JANUMET [Suspect]
     Active Substance: METFORMIN HYDROCHLORIDE\SITAGLIPTIN PHOSPHATE
     Indication: TYPE 2 DIABETES MELLITUS
     Dosage: 50-1000 TWICE DAILY
     Route: 048
     Dates: start: 20071224, end: 20130220

REACTIONS (19)
  - Pancreatic carcinoma metastatic [Fatal]
  - Duodenal ulcer [Unknown]
  - Cholecystectomy [Unknown]
  - Cataract operation [Unknown]
  - Hypertension [Unknown]
  - Depression [Unknown]
  - Lung neoplasm malignant [Unknown]
  - Surgery [Unknown]
  - Carpal tunnel decompression [Unknown]
  - Bile duct obstruction [Unknown]
  - Arthritis [Unknown]
  - Anxiety [Unknown]
  - Metastases to liver [Unknown]
  - Diabetic ketoacidosis [Recovered/Resolved]
  - Blood cholesterol increased [Unknown]
  - Constipation [Unknown]
  - Dysphagia [Unknown]
  - Emphysema [Unknown]
  - Coronary arterial stent insertion [Unknown]

NARRATIVE: CASE EVENT DATE: 20130116
